FAERS Safety Report 19788131 (Version 1)
Quarter: 2021Q3

REPORT INFORMATION
  Report Type: Spontaneous
  Country: US (occurrence: US)
  Receive Date: 20210903
  Receipt Date: 20210903
  Transmission Date: 20211014
  Serious: No
  Sender: FDA-Public Use
  Company Number: US-BAUSCH-BL-2021-029902

PATIENT
  Age: 57 Year
  Sex: Male

DRUGS (5)
  1. CABOMETYX [Interacting]
     Active Substance: CABOZANTINIB S-MALATE
     Route: 048
     Dates: start: 202106
  2. TRAZODONE [Concomitant]
     Active Substance: TRAZODONE HYDROCHLORIDE
     Indication: PRODUCT USED FOR UNKNOWN INDICATION
  3. DILTIAZEM. [Suspect]
     Active Substance: DILTIAZEM
     Indication: BLOOD PRESSURE INCREASED
     Route: 065
     Dates: start: 20210707
  4. CABOMETYX [Interacting]
     Active Substance: CABOZANTINIB S-MALATE
     Indication: RENAL CANCER
     Route: 048
     Dates: start: 20210525, end: 20210616
  5. CLONIDINE. [Concomitant]
     Active Substance: CLONIDINE
     Indication: PRODUCT USED FOR UNKNOWN INDICATION

REACTIONS (5)
  - Abdominal pain [Unknown]
  - Back pain [Unknown]
  - Blood pressure increased [Recovering/Resolving]
  - Ageusia [Unknown]
  - Drug interaction [Unknown]

NARRATIVE: CASE EVENT DATE: 2021
